FAERS Safety Report 6392405-7 (Version None)
Quarter: 2009Q4

REPORT INFORMATION
  Report Type: 
  Country: None (occurrence: None)
  Receive Date: 20091007
  Receipt Date: 20090925
  Transmission Date: 20100525
  Serious: Yes (Death)
  Sender: FDA-Public Use
  Company Number: FR-PFIZER INC-2009277786

PATIENT
  Age: 30 Year

DRUGS (4)
  1. ATARAX [Suspect]
     Dosage: UNK
     Dates: end: 20080213
  2. SUBUTEX [Suspect]
     Dosage: UNK
     Dates: end: 20080213
  3. OXAZEPAM [Concomitant]
     Dosage: UNK
     Dates: end: 20080213
  4. PAROXETINE HCL [Concomitant]
     Dosage: UNK
     Dates: end: 20080213

REACTIONS (4)
  - ASPHYXIA [None]
  - DRUG INTERACTION [None]
  - OVERDOSE [None]
  - RESPIRATORY DEPRESSION [None]
